FAERS Safety Report 4719459-5 (Version None)
Quarter: 2005Q3

REPORT INFORMATION
  Report Type: 
  Country: None (occurrence: None)
  Receive Date: 20050719
  Receipt Date: 20050629
  Transmission Date: 20060218
  Serious: Yes (Other)
  Sender: FDA-Public Use
  Company Number: USA0506101669

PATIENT
  Age: 45 Year
  Sex: Male

DRUGS (2)
  1. FORTEO [Suspect]
     Indication: OSTEOPOROSIS
     Dosage: 20 UG DAY
     Dates: start: 20040701
  2. HYDROCHLOROTHIAZIDE [Concomitant]

REACTIONS (2)
  - EJECTION FRACTION DECREASED [None]
  - VENTRICULAR HYPOKINESIA [None]
